FAERS Safety Report 19892861 (Version 2)
Quarter: 2021Q4

REPORT INFORMATION
  Report Type: Spontaneous
  Country: CA (occurrence: CA)
  Receive Date: 20210928
  Receipt Date: 20211026
  Transmission Date: 20220303
  Serious: Yes (Hospitalization)
  Sender: FDA-Public Use
  Company Number: CA-BIOMARINAP-CA-2021-136916

PATIENT
  Age: 46 Year
  Sex: Male
  Weight: 85 kg

DRUGS (4)
  1. KUVAN [Suspect]
     Active Substance: SAPROPTERIN DIHYDROCHLORIDE
     Indication: Phenylketonuria
     Dosage: 1700 MILLIGRAM, QD
     Route: 048
     Dates: start: 2019
  2. KUVAN [Suspect]
     Active Substance: SAPROPTERIN DIHYDROCHLORIDE
     Dosage: 1700 MILLIGRAM, QD
     Route: 048
     Dates: start: 20130327, end: 2019
  3. OXYCODONE [Concomitant]
     Active Substance: OXYCODONE
     Indication: Pain
     Dosage: 40 MILLIGRAM, BID
     Route: 065
  4. OXYCONTIN [Concomitant]
     Active Substance: OXYCODONE HYDROCHLORIDE
     Indication: Pain
     Dosage: 6 TABLETS, QD
     Route: 065

REACTIONS (6)
  - Bipolar disorder [Unknown]
  - Depression [Unknown]
  - Anger [Unknown]
  - Cerebral disorder [Not Recovered/Not Resolved]
  - Mentally late developer [Not Recovered/Not Resolved]
  - Constipation [Unknown]
